FAERS Safety Report 24952126 (Version 1)
Quarter: 2025Q1

REPORT INFORMATION
  Report Type: Spontaneous
  Country: US (occurrence: None)
  Receive Date: 20250209
  Receipt Date: 20250209
  Transmission Date: 20250409
  Serious: Yes (Life-Threatening, Hospitalization)
  Sender: FDA-CTU
  Company Number: None

PATIENT
  Age: 32 Year
  Sex: Female
  Weight: 67.5 kg

DRUGS (1)
  1. MISOPROSTOL [Suspect]
     Active Substance: MISOPROSTOL
     Indication: Abortion spontaneous
     Dates: start: 20250206, end: 20250206

REACTIONS (2)
  - Post abortion haemorrhage [None]
  - Therapeutic procedure [None]

NARRATIVE: CASE EVENT DATE: 20250206
